FAERS Safety Report 19312712 (Version 1)
Quarter: 2021Q2

REPORT INFORMATION
  Report Type: Spontaneous
  Country: FR (occurrence: FR)
  Receive Date: 20210527
  Receipt Date: 20210527
  Transmission Date: 20210717
  Serious: Yes (Hospitalization)
  Sender: FDA-Public Use
  Company Number: FR-TEVA-2021-FR-1915097

PATIENT
  Age: 76 Year
  Sex: Female

DRUGS (12)
  1. LINEZOLIDE [Suspect]
     Active Substance: LINEZOLID
     Indication: INFECTION
     Dosage: 600 MG
     Route: 048
     Dates: start: 20200903, end: 20200912
  2. ZOVIRAX [Suspect]
     Active Substance: ACYCLOVIR
     Indication: HERPES ZOSTER
     Route: 042
     Dates: start: 20200904, end: 20200904
  3. PANTOPRAZOLE [Concomitant]
     Active Substance: PANTOPRAZOLE
  4. TARDYFERON [Concomitant]
     Active Substance: FERROUS SULFATE
  5. SERESTA [Concomitant]
     Active Substance: OXAZEPAM
  6. PERINDOPRIL [Suspect]
     Active Substance: PERINDOPRIL
     Indication: HYPERTENSION
     Dosage: 1 DF
     Route: 048
     Dates: end: 20200911
  7. DAFALGAN [Concomitant]
     Active Substance: ACETAMINOPHEN
  8. BISOPROLOL [Concomitant]
     Active Substance: BISOPROLOL
  9. ZELITREX [Suspect]
     Active Substance: VALACYCLOVIR HYDROCHLORIDE
     Indication: HERPES ZOSTER
     Dosage: 2 DF
     Route: 048
     Dates: start: 20200904
  10. FUROSEMIDE. [Suspect]
     Active Substance: FUROSEMIDE
     Indication: CARDIAC FAILURE
     Route: 042
     Dates: start: 202009, end: 20200911
  11. LERCAN [Concomitant]
     Active Substance: LERCANIDIPINE
  12. LOPERAMIDE [Concomitant]
     Active Substance: LOPERAMIDE

REACTIONS (1)
  - Acute kidney injury [Recovered/Resolved]

NARRATIVE: CASE EVENT DATE: 20200907
